FAERS Safety Report 7472493-7 (Version None)
Quarter: 2011Q2

REPORT INFORMATION
  Report Type: 
  Country: None (occurrence: None)
  Receive Date: 20110511
  Receipt Date: 20110504
  Transmission Date: 20111010
  Serious: Yes (Hospitalization)
  Sender: FDA-Public Use
  Company Number: PHHY2011BE36730

PATIENT
  Sex: Female

DRUGS (11)
  1. TEGRETOL [Suspect]
     Indication: PAIN
     Dosage: 200 MG, QID
     Route: 048
  2. CIPROXIN [Concomitant]
  3. LIORESAL [Suspect]
     Indication: PAIN
     Dosage: 25 MG, TID
     Route: 048
  4. OMEPRAZOLE [Concomitant]
  5. INDERAL [Concomitant]
  6. DOMINAL [Concomitant]
  7. LITICAN [Concomitant]
  8. ZANTAC [Concomitant]
  9. CYMBALTA [Concomitant]
  10. IBRUPROFEN [Concomitant]
  11. ZOPICLONE [Concomitant]

REACTIONS (3)
  - TOXICITY TO VARIOUS AGENTS [None]
  - ABDOMINAL PAIN UPPER [None]
  - OVERDOSE [None]
